FAERS Safety Report 7546744-4 (Version None)
Quarter: 2011Q2

REPORT INFORMATION
  Report Type: 
  Country: None (occurrence: None)
  Receive Date: 20110614
  Receipt Date: 20110607
  Transmission Date: 20111010
  Serious: Yes (Hospitalization)
  Sender: FDA-Public Use
  Company Number: B0717575A

PATIENT
  Sex: Female
  Weight: 61.7 kg

DRUGS (22)
  1. PACLITAXEL [Suspect]
     Dosage: 135MG WEEKLY
     Route: 042
     Dates: start: 20110216
  2. PHENERGAN HCL [Concomitant]
     Indication: NAUSEA
     Dosage: 20ML PER DAY
     Dates: start: 20110419
  3. PROCHLORPERAZINE [Concomitant]
     Indication: NAUSEA
     Dosage: 5MG PER DAY
     Dates: start: 20110216
  4. METHADONE HCL [Concomitant]
     Indication: PAIN
     Dosage: 10MG NINE TIMES PER DAY
     Dates: start: 20110315
  5. LORAZEPAM [Concomitant]
     Indication: NAUSEA
     Dosage: .5MG PER DAY
     Dates: start: 20110318
  6. VITAMIN B [Concomitant]
     Dates: start: 20080101
  7. AVAPRO HCT [Concomitant]
     Indication: HYPERTENSION
     Dates: start: 20010101
  8. NEXIUM [Concomitant]
     Indication: NAUSEA
     Dates: start: 20110420
  9. DEXAMETHASONE [Concomitant]
     Indication: NAUSEA
     Dosage: 8MG PER DAY
     Dates: start: 20110209
  10. COLOXYL + SENNA [Concomitant]
     Indication: CONSTIPATION
     Dosage: 50MG AS REQUIRED
     Dates: start: 20110202
  11. LAPATINIB [Suspect]
     Dosage: 1250MG PER DAY
     Route: 048
     Dates: start: 20110216
  12. PANADOL OSTEO [Concomitant]
     Indication: PAIN
     Dosage: 665MG TWICE PER DAY
     Dates: start: 20110202
  13. MAXOLON [Concomitant]
     Indication: NAUSEA
     Dosage: 10MG PER DAY
     Dates: start: 20110209
  14. HALOPERIDOL [Concomitant]
     Indication: NAUSEA
     Dates: start: 20110126
  15. PRAMIN [Concomitant]
     Indication: NAUSEA
     Dosage: 10MG FOUR TIMES PER DAY
     Dates: start: 20110202
  16. VENTOLIN HFA [Concomitant]
     Indication: ASTHMA
     Dates: start: 19760101
  17. OMEPRAZOLE [Concomitant]
     Indication: ILL-DEFINED DISORDER
     Dates: start: 20110216
  18. GABAPENTIN [Concomitant]
     Indication: HOT FLUSH
     Dosage: 300MG FIVE TIMES PER DAY
     Dates: start: 20110322
  19. KYTRIL [Concomitant]
     Indication: NAUSEA
     Dosage: 2MG PER DAY
     Dates: start: 20110216
  20. CALCIUM CARBONATE [Concomitant]
     Dates: start: 20080101
  21. EFFEXOR [Concomitant]
     Dosage: 75MG PER DAY
  22. MOVIPREP [Concomitant]
     Indication: CONSTIPATION
     Dosage: 3SAC PER DAY
     Dates: start: 20110212

REACTIONS (3)
  - DEEP VEIN THROMBOSIS [None]
  - PNEUMONITIS [None]
  - ILEUS [None]
